FAERS Safety Report 11503059 (Version 3)
Quarter: 2015Q4

REPORT INFORMATION
  Report Type: Spontaneous
  Country: US (occurrence: US)
  Receive Date: 20150914
  Receipt Date: 20151016
  Transmission Date: 20160304
  Serious: Yes (Other)
  Sender: FDA-Public Use
  Company Number: US-ASTELLAS-2015US030275

PATIENT
  Age: 91 Year
  Sex: Male

DRUGS (1)
  1. XTANDI [Suspect]
     Active Substance: ENZALUTAMIDE
     Indication: PROSTATE CANCER
     Dosage: 160 MG (40 MG X 4), ONCE DAILY
     Route: 048
     Dates: start: 20150720, end: 20150914

REACTIONS (5)
  - Feeling abnormal [Unknown]
  - Peripheral swelling [Recovering/Resolving]
  - Fall [Unknown]
  - Upper limb fracture [Unknown]
  - Gait disturbance [Unknown]

NARRATIVE: CASE EVENT DATE: 20150806
